FAERS Safety Report 6502220-9 (Version None)
Quarter: 2009Q4

REPORT INFORMATION
  Report Type: 
  Country: None (occurrence: None)
  Receive Date: 20091216
  Receipt Date: 20091103
  Transmission Date: 20100525
  Serious: No
  Sender: FDA-Public Use
  Company Number: US-ABBOTT-09P-163-0607161-00

PATIENT
  Sex: Female
  Weight: 84.898 kg

DRUGS (3)
  1. TRILIPIX [Suspect]
     Indication: BLOOD CHOLESTEROL INCREASED
     Dates: start: 20090901, end: 20091031
  2. TRILIPIX [Suspect]
     Dates: start: 20091102, end: 20091103
  3. LIPITOR [Concomitant]
     Indication: BLOOD CHOLESTEROL INCREASED
     Dates: start: 20080901

REACTIONS (2)
  - MEDICATION ERROR [None]
  - PAIN IN EXTREMITY [None]
